FAERS Safety Report 7104701-6 (Version None)
Quarter: 2010Q4

REPORT INFORMATION
  Report Type: 
  Country: None (occurrence: None)
  Receive Date: 20101116
  Receipt Date: 20101109
  Transmission Date: 20110411
  Serious: Yes (Life-Threatening, Hospitalization, Other)
  Sender: FDA-Public Use
  Company Number: US-BAYER-201025664NA

PATIENT
  Age: 44 Year
  Sex: Female
  Weight: 95 kg

DRUGS (4)
  1. MIRENA [Suspect]
     Indication: VAGINAL HAEMORRHAGE
     Dosage: FREQUENCY: CONTINUOUS
     Route: 015
     Dates: start: 20100413, end: 20100511
  2. ORAL CONTRACEPTIVE NOS [Concomitant]
     Indication: ORAL CONTRACEPTION
     Route: 048
     Dates: start: 20100101, end: 20100413
  3. AYGESTIN [Concomitant]
     Indication: VAGINAL HAEMORRHAGE
     Dosage: UNIT DOSE: 5 MG
  4. ADVAIR DISKUS 100/50 [Concomitant]
     Indication: PRODUCT USED FOR UNKNOWN INDICATION

REACTIONS (1)
  - PULMONARY EMBOLISM [None]
